FAERS Safety Report 16937630 (Version 10)
Quarter: 2024Q2

REPORT INFORMATION
  Report Type: Report from Study
  Country: JP (occurrence: JP)
  Receive Date: 20191018
  Receipt Date: 20240613
  Transmission Date: 20240716
  Serious: Yes (Hospitalization)
  Sender: FDA-Public Use
  Company Number: JP-ABBVIE-19K-087-2875874-00

PATIENT
  Age: 57 Year
  Sex: Female
  Weight: 53 kg

DRUGS (20)
  1. CARBIDOPA\LEVODOPA [Suspect]
     Active Substance: CARBIDOPA\LEVODOPA
     Indication: Parkinson^s disease
     Dosage: MD: 11 ML?CD: 2.7 ML/HR FOR 16 HRS?ED: 1 ML/UNIT FOR 5
     Route: 050
     Dates: start: 20191126, end: 20201126
  2. CARBIDOPA\LEVODOPA [Suspect]
     Active Substance: CARBIDOPA\LEVODOPA
     Dosage: MD: 11 ML?CD: 3.5 ML/HR  FOR 16 HRS?ED: 2 ML/UNIT FOR 3
     Route: 050
     Dates: start: 20190415, end: 20190622
  3. CARBIDOPA\LEVODOPA [Suspect]
     Active Substance: CARBIDOPA\LEVODOPA
     Dosage: MD: 11 ML, CD: 2.6 ML/HR FOR 16 HRS, ED: 1.5 ML/UNIT FOR 5
     Route: 050
     Dates: start: 20190622, end: 20200624
  4. CARBIDOPA\LEVODOPA [Suspect]
     Active Substance: CARBIDOPA\LEVODOPA
     Dosage: MD: 11 ML, CD: 2.6 ML/HR ? 16 HRS, ED: 1.0 ML/UNIT ? 5
     Route: 050
     Dates: start: 20200624, end: 20201126
  5. DROXIDOPA [Concomitant]
     Active Substance: DROXIDOPA
     Indication: Parkinson^s disease
     Dosage: TIME INTERVAL: 0.33333333 DAYS: 300 MILLIGRAM
     Route: 048
     Dates: start: 20201126
  6. DROXIDOPA [Concomitant]
     Active Substance: DROXIDOPA
     Indication: Parkinson^s disease
     Dosage: 300 MILLIGRAM
     Route: 048
     Dates: start: 20201126
  7. HERBALS [Concomitant]
     Active Substance: HERBALS
     Indication: Product used for unknown indication
     Route: 048
  8. MAGNESIUM OXIDE [Concomitant]
     Active Substance: MAGNESIUM OXIDE
     Indication: Product used for unknown indication
     Route: 048
  9. CLONAZEPAM [Concomitant]
     Active Substance: CLONAZEPAM
     Indication: Product used for unknown indication
     Route: 048
  10. LANSOPRAZOLE [Concomitant]
     Active Substance: LANSOPRAZOLE
     Indication: Product used for unknown indication
     Route: 048
  11. LUBIPROSTONE [Concomitant]
     Active Substance: LUBIPROSTONE
     Indication: Product used for unknown indication
     Route: 048
  12. FLUNITRAZEPAM-B [Concomitant]
     Indication: Product used for unknown indication
     Route: 048
     Dates: end: 20190224
  13. FLUNITRAZEPAM-B [Concomitant]
     Indication: Product used for unknown indication
     Dosage: 1 MG
     Route: 048
     Dates: start: 20190510
  14. SUVOREXANT [Concomitant]
     Active Substance: SUVOREXANT
     Indication: Product used for unknown indication
     Dosage: 15 MILLIGRAM
     Dates: end: 20200809
  15. SUVOREXANT [Concomitant]
     Active Substance: SUVOREXANT
     Indication: Product used for unknown indication
     Route: 048
  16. RAMELTEON [Concomitant]
     Active Substance: RAMELTEON
     Indication: Product used for unknown indication
     Dosage: 8 MILLIGRAM
     Dates: end: 20191210
  17. RAMELTEON [Concomitant]
     Active Substance: RAMELTEON
     Indication: Product used for unknown indication
     Route: 048
  18. QUETIAPINE FUMARATE [Concomitant]
     Active Substance: QUETIAPINE FUMARATE
     Indication: Product used for unknown indication
     Route: 048
  19. ZOLPIDEM TARTRATE [Concomitant]
     Active Substance: ZOLPIDEM TARTRATE
     Indication: Product used for unknown indication
     Dates: start: 20190225, end: 20190509
  20. MOSAPRIDE CITRATE [Concomitant]
     Active Substance: MOSAPRIDE CITRATE
     Indication: Product used for unknown indication
     Route: 048

REACTIONS (13)
  - Fractured sacrum [Recovered/Resolved]
  - Osteoporosis [Not Recovered/Not Resolved]
  - Insomnia [Not Recovered/Not Resolved]
  - Gastrointestinal oedema [Unknown]
  - Fall [Recovered/Resolved]
  - Stoma site infection [Recovering/Resolving]
  - Stoma site hypergranulation [Not Recovered/Not Resolved]
  - Dyskinesia [Recovered/Resolved]
  - Stoma site inflammation [Not Recovered/Not Resolved]
  - Dyskinesia [Recovering/Resolving]
  - Orthostatic hypotension [Recovering/Resolving]
  - Stoma site discharge [Recovering/Resolving]
  - Dyskinesia [Recovered/Resolved]

NARRATIVE: CASE EVENT DATE: 20190605
